FAERS Safety Report 6669075-3 (Version None)
Quarter: 2010Q2

REPORT INFORMATION
  Report Type: 
  Country: None (occurrence: None)
  Receive Date: 20100406
  Receipt Date: 20100325
  Transmission Date: 20101027
  Serious: Yes (Other)
  Sender: FDA-Public Use
  Company Number: JP-PFIZER INC-2010042742

PATIENT

DRUGS (1)
  1. REVATIO [Suspect]
     Route: 048

REACTIONS (1)
  - HEART RATE DECREASED [None]
